FAERS Safety Report 7413606-2 (Version None)
Quarter: 2011Q2

REPORT INFORMATION
  Report Type: 
  Country: None (occurrence: None)
  Receive Date: 20110413
  Receipt Date: 20110407
  Transmission Date: 20111010
  Serious: Yes (Death, Other)
  Sender: FDA-Public Use
  Company Number: HR-GENZYME-CERZ-1001789

PATIENT

DRUGS (1)
  1. CEREZYME [Suspect]
     Indication: GAUCHER'S DISEASE
     Dosage: 80 U/KG, QW
     Route: 042
     Dates: start: 20100915, end: 20101227

REACTIONS (7)
  - RESPIRATORY FAILURE [None]
  - CARDIAC FAILURE [None]
  - STAPHYLOCOCCAL INFECTION [None]
  - CYTOMEGALOVIRUS INFECTION [None]
  - SEPTIC SHOCK [None]
  - TRANSPLANT REJECTION [None]
  - PANCYTOPENIA [None]
